FAERS Safety Report 19971182 (Version 3)
Quarter: 2022Q1

REPORT INFORMATION
  Report Type: Report from Study
  Country: US (occurrence: US)
  Receive Date: 20211020
  Receipt Date: 20220121
  Transmission Date: 20220423
  Serious: Yes (Other)
  Sender: FDA-Public Use
  Company Number: US-ABBVIE-21K-163-4124339-00

PATIENT
  Sex: Female
  Weight: 44.6 kg

DRUGS (10)
  1. HUMIRA [Suspect]
     Active Substance: ADALIMUMAB
     Indication: Crohn^s disease
     Dosage: DAY 1
     Route: 058
     Dates: start: 20210316, end: 20210316
  2. HUMIRA [Suspect]
     Active Substance: ADALIMUMAB
     Dosage: DAY 15
     Route: 058
     Dates: start: 20210330, end: 20210330
  3. HUMIRA [Suspect]
     Active Substance: ADALIMUMAB
     Indication: Crohn^s disease
     Dosage: DAY 29
     Route: 058
     Dates: start: 20210413
  4. HUMIRA [Suspect]
     Active Substance: ADALIMUMAB
     Route: 058
     Dates: start: 202105
  5. ENTOCORT [Concomitant]
     Active Substance: BUDESONIDE
     Indication: Product used for unknown indication
     Dosage: DELAYED RELEASE CAPSULE
     Route: 048
  6. BENADRYL [Concomitant]
     Active Substance: DIPHENHYDRAMINE HYDROCHLORIDE
     Indication: Product used for unknown indication
     Route: 048
  7. APRISO [Concomitant]
     Active Substance: MESALAMINE
     Indication: Product used for unknown indication
     Route: 048
  8. APRISO [Concomitant]
     Active Substance: MESALAMINE
     Route: 048
  9. ACETAMINOPHEN [Concomitant]
     Active Substance: ACETAMINOPHEN
     Indication: Pain
  10. DELTASONE [Concomitant]
     Active Substance: PREDNISONE
     Indication: Product used for unknown indication
     Route: 048

REACTIONS (19)
  - Anal fistula [Recovering/Resolving]
  - Colorectal cancer [Unknown]
  - Adverse food reaction [Unknown]
  - Asthenia [Unknown]
  - Platelet count increased [Unknown]
  - Decreased appetite [Not Recovered/Not Resolved]
  - Rectal discharge [Unknown]
  - Mucous stools [Unknown]
  - Anxiety [Unknown]
  - Palpitations [Unknown]
  - Pain [Unknown]
  - Colitis ulcerative [Recovered/Resolved]
  - SARS-CoV-2 test positive [Unknown]
  - Insomnia [Unknown]
  - Fistula [Unknown]
  - Musculoskeletal pain [Unknown]
  - Flatulence [Unknown]
  - Arthralgia [Unknown]
  - Weight decreased [Unknown]

NARRATIVE: CASE EVENT DATE: 20210101
